FAERS Safety Report 16126254 (Version 1)
Quarter: 2019Q1

REPORT INFORMATION
  Report Type: Spontaneous
  Country: FR (occurrence: FR)
  Receive Date: 20190328
  Receipt Date: 20190328
  Transmission Date: 20190418
  Serious: Yes (Hospitalization)
  Sender: FDA-Public Use
  Company Number: FR-ROCHE-2289898

PATIENT
  Age: 71 Year
  Sex: Male
  Weight: 62.6 kg

DRUGS (17)
  1. ROVALCYTE [Suspect]
     Active Substance: VALGANCICLOVIR HYDROCHLORIDE
     Indication: ANTIVIRAL PROPHYLAXIS
     Dosage: 1-0-0?ON 25/FEB/2019, HE RECEIVED MOST RECENT DOSE OF VALGANCICLOVIR HYDROCHLORIDE.
     Route: 048
     Dates: start: 201810
  2. LOVENOX [Suspect]
     Active Substance: ENOXAPARIN SODIUM
     Indication: THROMBOSIS PROPHYLAXIS
     Dosage: 1-0-1?ON 20/FEB/2019, HE RECEIVED MOST RECENT DOSE OF ENOXAPARIN SODIUM.
     Route: 058
     Dates: start: 20190208
  3. ENVARSUS XR [Concomitant]
     Active Substance: TACROLIMUS
     Indication: PROPHYLAXIS AGAINST TRANSPLANT REJECTION
     Route: 048
     Dates: start: 201810
  4. PERINDOPRIL ARROW [Concomitant]
     Active Substance: PERINDOPRIL
     Indication: HYPERTENSION
     Route: 048
     Dates: start: 20190228
  5. IMOVANE [Concomitant]
     Active Substance: ZOPICLONE
     Indication: SLEEP DISORDER
     Route: 048
     Dates: start: 201810
  6. DOLIPRANE [Concomitant]
     Active Substance: ACETAMINOPHEN
     Indication: PAIN
     Dosage: 500 MG
     Route: 048
     Dates: start: 201810
  7. BACTRIM [Suspect]
     Active Substance: SULFAMETHOXAZOLE\TRIMETHOPRIM
     Indication: ANTIFUNGAL PROPHYLAXIS
     Dosage: 1-0-0 (800/160MG)?ON 24/FEB/2019, HE RECEIVED MOST RECENT DOSE OF SULFAMETHOXAZOLE/TRIMETHOPRIM.
     Route: 048
     Dates: start: 201810
  8. BISOPROLOL [Concomitant]
     Active Substance: BISOPROLOL
     Indication: HYPERTENSION
     Dosage: 1-0-0
     Route: 048
     Dates: start: 201810
  9. CALCIPARINE [Suspect]
     Active Substance: HEPARIN CALCIUM
     Indication: THROMBOSIS PROPHYLAXIS
     Dosage: ON 24/FEB/2019, HE RECEIVED MOST RECENT DOSE OF HEPARIN CALCIUM.
     Route: 058
     Dates: start: 20190220
  10. KARDEGIC [Concomitant]
     Active Substance: ASPIRIN DL-LYSINE
     Indication: THROMBOSIS PROPHYLAXIS
     Dosage: 1-0-0
     Route: 048
     Dates: start: 20190228
  11. CLAMOXYL (FRANCE) [Suspect]
     Active Substance: AMOXICILLIN
     Indication: URINARY TRACT INFECTION
     Dosage: 1-1-1?ON 19/FEB/2019, HE RECEIVED MOST RECENT DOSE OF AMOXICILLIN.
     Route: 048
     Dates: start: 20190208
  12. TAMIFLU [Suspect]
     Active Substance: OSELTAMIVIR PHOSPHATE
     Indication: INFLUENZA
     Dosage: 1-0-0?ON 23/FEB/2019, HE RECEIVED MOST RECENT DOSE OF OSELTAMIVIR PHOSPHATE.
     Route: 048
     Dates: start: 20190219
  13. PERINDOPRIL ARROW [Concomitant]
     Active Substance: PERINDOPRIL
     Indication: HYPERTENSION
     Dosage: 1-0-0
     Route: 048
     Dates: start: 201810, end: 20190208
  14. CELLCEPT [Concomitant]
     Active Substance: MYCOPHENOLATE MOFETIL\MYCOPHENOLATE MOFETIL HYDROCHLORIDE
     Indication: PROPHYLAXIS AGAINST TRANSPLANT REJECTION
     Dosage: 1-0-0
     Route: 047
     Dates: start: 201810
  15. KARDEGIC [Concomitant]
     Active Substance: ASPIRIN DL-LYSINE
     Indication: THROMBOSIS PROPHYLAXIS
     Dosage: 1-0-0
     Route: 048
     Dates: start: 201810, end: 20190208
  16. CORTANCYL [Concomitant]
     Active Substance: PREDNISONE
     Indication: PROPHYLAXIS AGAINST TRANSPLANT REJECTION
     Dosage: 1-0-0
     Route: 048
     Dates: start: 201810, end: 20190228
  17. INEXIUM [Concomitant]
     Active Substance: ESOMEPRAZOLE
     Indication: PROPHYLAXIS AGAINST GASTROINTESTINAL ULCER
     Dosage: 0-0-1
     Route: 048
     Dates: start: 201810, end: 20190208

REACTIONS (1)
  - Agranulocytosis [Recovered/Resolved]

NARRATIVE: CASE EVENT DATE: 20190222
